FAERS Safety Report 19397695 (Version 1)
Quarter: 2021Q2

REPORT INFORMATION
  Report Type: Spontaneous
  Country: CA (occurrence: CA)
  Receive Date: 20210610
  Receipt Date: 20210610
  Transmission Date: 20210717
  Serious: Yes (Other)
  Sender: FDA-Public Use
  Company Number: CA-BAUSCH-BL-2021-020569

PATIENT
  Age: 2 Year
  Sex: Male

DRUGS (6)
  1. LOMUSTINE. [Concomitant]
     Active Substance: LOMUSTINE
     Indication: GLIOMA
  2. THIOGUANINE [Concomitant]
     Active Substance: THIOGUANINE
     Indication: GLIOMA
  3. PROCARBAZINE [Concomitant]
     Active Substance: PROCARBAZINE
     Indication: GLIOMA
  4. VINCRISTINE [Concomitant]
     Active Substance: VINCRISTINE
     Indication: GLIOMA
  5. DEXAMETHASONE. [Suspect]
     Active Substance: DEXAMETHASONE
     Indication: PRODUCT USED FOR UNKNOWN INDICATION
     Route: 065
  6. DABRAFENIB [Concomitant]
     Active Substance: DABRAFENIB
     Indication: GLIOMA

REACTIONS (2)
  - Drug ineffective [Unknown]
  - Adverse drug reaction [Unknown]
